FAERS Safety Report 9830000 (Version 2)
Quarter: 2014Q2

REPORT INFORMATION
  Report Type: Spontaneous
  Country: US (occurrence: US)
  Receive Date: 20140120
  Receipt Date: 20140404
  Transmission Date: 20141212
  Serious: Yes (Other)
  Sender: FDA-Public Use
  Company Number: PHEH2014US001231

PATIENT
  Sex: Male

DRUGS (1)
  1. ZOMETA [Suspect]
     Indication: PLASMA CELL MYELOMA
     Dosage: UNK UKN, UNK
     Route: 042

REACTIONS (3)
  - Osteonecrosis of jaw [Recovered/Resolved]
  - Plasma cell myeloma recurrent [Unknown]
  - Metastases to bone [Unknown]
